FAERS Safety Report 8416777-4 (Version None)
Quarter: 2012Q2

REPORT INFORMATION
  Report Type: 
  Country: None (occurrence: None)
  Receive Date: 20120606
  Receipt Date: 20120530
  Transmission Date: 20120825
  Serious: Yes (Hospitalization, Other)
  Sender: FDA-Public Use
  Company Number: US-MERCK-1202USA03875

PATIENT
  Age: 76 Year
  Sex: Female

DRUGS (11)
  1. LOTREL [Concomitant]
     Indication: HYPERTENSION
     Route: 065
  2. FOSAMAX PLUS D [Suspect]
     Indication: OSTEOPOROSIS
     Route: 048
     Dates: start: 20070726
  3. ACTONEL [Suspect]
     Route: 065
     Dates: start: 20031201
  4. BONIVA [Suspect]
     Route: 065
  5. PREMARIN [Concomitant]
     Route: 065
     Dates: start: 19740101
  6. FOSAMAX [Suspect]
     Indication: OSTEOPENIA
     Route: 048
     Dates: start: 20020101
  7. SYNTHROID [Concomitant]
     Indication: HYPOTHYROIDISM
     Route: 065
  8. ALENDRONATE SODIUM [Suspect]
     Indication: OSTEOPENIA
     Route: 048
     Dates: start: 20090201, end: 20100501
  9. ALENDRONATE SODIUM [Suspect]
     Indication: OSTEOPOROSIS
     Route: 048
     Dates: start: 20090201, end: 20100501
  10. FOSAMAX PLUS D [Suspect]
     Indication: OSTEOPENIA
     Route: 048
     Dates: start: 20070726
  11. FOSAMAX [Suspect]
     Indication: OSTEOPOROSIS
     Route: 048
     Dates: start: 20020101

REACTIONS (17)
  - INCREASED TENDENCY TO BRUISE [None]
  - ALOPECIA [None]
  - TYPE 2 DIABETES MELLITUS [None]
  - DEVICE FAILURE [None]
  - OEDEMA PERIPHERAL [None]
  - TENDONITIS [None]
  - BURSITIS [None]
  - CERUMEN IMPACTION [None]
  - ARTHRITIS [None]
  - OSTEOARTHRITIS [None]
  - FEMUR FRACTURE [None]
  - HYPERTRICHOSIS [None]
  - OSTEONECROSIS [None]
  - CYSTOCELE [None]
  - FALL [None]
  - URINARY INCONTINENCE [None]
  - ABDOMINAL PAIN [None]
